FAERS Safety Report 23405528 (Version 3)
Quarter: 2024Q3

REPORT INFORMATION
  Report Type: Spontaneous
  Country: US (occurrence: US)
  Receive Date: 20240116
  Receipt Date: 20240829
  Transmission Date: 20241017
  Serious: No
  Sender: BRISTOL MYERS SQUIBB
  Company Number: US-BRISTOL-MYERS SQUIBB COMPANY-2023-185084

PATIENT
  Age: 65 Year
  Sex: Male

DRUGS (3)
  1. POMALYST [Suspect]
     Active Substance: POMALIDOMIDE
     Indication: Plasma cell myeloma
     Dosage: TAKE 1 CAP BY MOUTH DAILY FOR 21 DAYS
     Route: 048
     Dates: start: 20231218
  2. POMALYST [Suspect]
     Active Substance: POMALIDOMIDE
     Dosage: TAKE 1 CAP BY MOUTH DAILY FOR 21 DAYS
     Route: 048
     Dates: start: 20231218
  3. POMALYST [Suspect]
     Active Substance: POMALIDOMIDE
     Dosage: TAKE 1 CAP BY MOUTH DAILY FOR 21 DAYS
     Route: 048

REACTIONS (1)
  - Product dose omission issue [Unknown]
